FAERS Safety Report 9669547 (Version 1)
Quarter: 2013Q4

REPORT INFORMATION
  Report Type: Spontaneous
  Country: US (occurrence: US)
  Receive Date: 20131105
  Receipt Date: 20131105
  Transmission Date: 20140711
  Serious: Yes (Hospitalization, Other)
  Sender: FDA-Public Use
  Company Number: US-ABBVIE-13P-163-1164321-00

PATIENT
  Sex: Male
  Weight: 204.3 kg

DRUGS (1)
  1. HUMIRA [Suspect]
     Indication: PRODUCT USED FOR UNKNOWN INDICATION

REACTIONS (3)
  - Thrombocytopenic purpura [Unknown]
  - Haemolytic uraemic syndrome [Unknown]
  - Acne [Not Recovered/Not Resolved]
